FAERS Safety Report 5536785-0 (Version None)
Quarter: 2007Q4

REPORT INFORMATION
  Report Type: 
  Country: None (occurrence: None)
  Receive Date: 20071206
  Receipt Date: 20070417
  Transmission Date: 20080405
  Serious: Yes (Other)
  Sender: FDA-Public Use
  Company Number: US-AMGEN-US220267

PATIENT
  Sex: Male

DRUGS (2)
  1. ENBREL [Suspect]
     Indication: RHEUMATOID ARTHRITIS
     Route: 058
     Dates: start: 20040601, end: 20050401
  2. METHOTREXATE [Suspect]
     Route: 048
     Dates: start: 20031201, end: 20050401

REACTIONS (2)
  - LARGE GRANULAR LYMPHOCYTOSIS [None]
  - WHITE BLOOD CELL COUNT DECREASED [None]
